FAERS Safety Report 7677090-6 (Version None)
Quarter: 2011Q3

REPORT INFORMATION
  Report Type: 
  Country: None (occurrence: None)
  Receive Date: 20110811
  Receipt Date: 20110801
  Transmission Date: 20111222
  Serious: Yes (Hospitalization)
  Sender: FDA-Public Use
  Company Number: US-JNJFOC-20090707675

PATIENT
  Sex: Female
  Weight: 50.5 kg

DRUGS (5)
  1. METRONIDAZOLE [Concomitant]
  2. REMICADE [Suspect]
     Indication: INFLAMMATORY BOWEL DISEASE
     Dosage: TOTAL 7 DOSES
     Route: 042
     Dates: start: 20071217
  3. CIPROFLOXACIN [Concomitant]
  4. REMICADE [Suspect]
     Route: 042
     Dates: start: 20070308
  5. CEFOXITIN [Concomitant]

REACTIONS (3)
  - ILEOSTOMY CLOSURE [None]
  - PELVIC ABSCESS [None]
  - POST PROCEDURAL COMPLICATION [None]
